FAERS Safety Report 10146179 (Version 3)
Quarter: 2014Q2

REPORT INFORMATION
  Report Type: Spontaneous
  Country: DE (occurrence: DE)
  Receive Date: 20140501
  Receipt Date: 20140526
  Transmission Date: 20141212
  Serious: Yes (Life-Threatening, Hospitalization)
  Sender: FDA-Public Use
  Company Number: DE-PFIZER INC-2014082608

PATIENT
  Age: 56 Year
  Sex: Male
  Weight: 68.4 kg

DRUGS (1)
  1. AZULFIDINE [Suspect]
     Indication: SHORT-BOWEL SYNDROME
     Dosage: 1000 MG (2X500MG), 4X/DAY
     Route: 048
     Dates: start: 2013

REACTIONS (4)
  - Dysphagia [Not Recovered/Not Resolved]
  - Foreign body [Recovered/Resolved]
  - Vomiting [Recovered/Resolved]
  - Wrong technique in drug usage process [Unknown]
